FAERS Safety Report 13254911 (Version 3)
Quarter: 2017Q1

REPORT INFORMATION
  Report Type: Spontaneous
  Country: US (occurrence: US)
  Receive Date: 20170221
  Receipt Date: 20170329
  Transmission Date: 20170428
  Serious: Yes (Hospitalization)
  Sender: FDA-Public Use
  Company Number: US-PFIZER INC-2017072259

PATIENT
  Age: 61 Year
  Sex: Female
  Weight: 125 kg

DRUGS (2)
  1. CELEBREX [Suspect]
     Active Substance: CELECOXIB
     Indication: ARTHRALGIA
     Dosage: 1X/DAY
     Dates: start: 201603, end: 20160910
  2. GLUCOSAMINE [Concomitant]
     Active Substance: GLUCOSAMINE
     Indication: ARTHRALGIA
     Dosage: TWO DOSAGE FORMS ONCE DAILY, OFF AND ON
     Dates: start: 2015, end: 201609

REACTIONS (2)
  - Cardiac murmur [Unknown]
  - Pulmonary embolism [Unknown]

NARRATIVE: CASE EVENT DATE: 201609
